FAERS Safety Report 18585228 (Version 3)
Quarter: 2021Q1

REPORT INFORMATION
  Report Type: Report from Study
  Country: HU (occurrence: HU)
  Receive Date: 20201207
  Receipt Date: 20210218
  Transmission Date: 20210419
  Serious: Yes (Death)
  Sender: FDA-Public Use
  Company Number: NVSC2020HU324683

PATIENT
  Sex: Female

DRUGS (1)
  1. BYL719 [Suspect]
     Active Substance: ALPELISIB
     Indication: BREAST CANCER
     Dosage: 2 CYCLES
     Route: 048

REACTIONS (4)
  - Dysgeusia [Unknown]
  - Breast cancer [Fatal]
  - Malignant neoplasm progression [Fatal]
  - Stomatitis [Unknown]
